FAERS Safety Report 12069112 (Version 2)
Quarter: 2016Q2

REPORT INFORMATION
  Report Type: Spontaneous
  Country: US (occurrence: US)
  Receive Date: 20160211
  Receipt Date: 20160429
  Transmission Date: 20160815
  Serious: No
  Sender: FDA-Public Use
  Company Number: US-009507513-1601USA011134

PATIENT
  Sex: Female
  Weight: 77.98 kg

DRUGS (1)
  1. IMPLANON [Suspect]
     Active Substance: ETONOGESTREL
     Dosage: 1 IMPLANT, 3 YEARS, IN HER LEFT ARM
     Route: 059
     Dates: start: 201512

REACTIONS (3)
  - Weight increased [Unknown]
  - Mood swings [Unknown]
  - Medical device discomfort [Unknown]
